FAERS Safety Report 5937108-5 (Version None)
Quarter: 2008Q4

REPORT INFORMATION
  Report Type: 
  Country: None (occurrence: None)
  Receive Date: 20081031
  Receipt Date: 20081022
  Transmission Date: 20090506
  Serious: Yes (Other)
  Sender: FDA-Public Use
  Company Number: PHNU2008DE02023

PATIENT
  Sex: Female
  Weight: 62 kg

DRUGS (3)
  1. FLUVASTATIN [Suspect]
     Indication: HYPERLIPIDAEMIA
     Dosage: 40 MG, QD
     Route: 048
  2. FLUVASTATIN [Suspect]
     Dosage: 80 MG, QD
     Route: 048
  3. HORMONES AND RELATED AGENTS [Concomitant]

REACTIONS (6)
  - ARTHRALGIA [None]
  - BLOOD CHOLESTEROL INCREASED [None]
  - COLLAGEN DISORDER [None]
  - LIPIDS INCREASED [None]
  - LOW DENSITY LIPOPROTEIN INCREASED [None]
  - OEDEMA [None]
